FAERS Safety Report 4587274-1 (Version None)
Quarter: 2005Q1

REPORT INFORMATION
  Report Type: 
  Country: None (occurrence: None)
  Receive Date: 20050215
  Receipt Date: 20050202
  Transmission Date: 20050727
  Serious: Yes (Hospitalization)
  Sender: FDA-Public Use
  Company Number: 2004027440

PATIENT
  Age: 50 Year
  Sex: Male

DRUGS (11)
  1. LIPITOR [Suspect]
     Indication: HYPERCHOLESTEROLAEMIA
     Dosage: 10 MG (1 IN 1 D), ORAL
     Route: 048
     Dates: start: 20040325
  2. RANITIDINE HYDROCHLORIDE [Concomitant]
  3. ACETYLSALICYLIC ACID SRT [Concomitant]
  4. CANDESARTAN CILEXETIL         (CANDESARTAN CILEXETIL) [Concomitant]
  5. TICLOPIDINE HCL [Concomitant]
  6. ISOSORBIDE MONONITRATE [Concomitant]
  7. NICORANDIL          (NICORANDIL) [Concomitant]
  8. WARFARIN SODIUM [Concomitant]
  9. RABEPRAZOLE SODIUM [Concomitant]
  10. FERROUS CITRATE [Concomitant]
  11. TEPRENONE                   (TEPRENONE) [Concomitant]

REACTIONS (18)
  - ALCOHOL USE [None]
  - BLOOD UREA INCREASED [None]
  - CARDIAC FAILURE [None]
  - CARDIAC MURMUR [None]
  - CHOKING SENSATION [None]
  - CORONARY ARTERY OCCLUSION [None]
  - CORONARY ARTERY STENOSIS [None]
  - INFECTION [None]
  - LUNG DISORDER [None]
  - NASOPHARYNGITIS [None]
  - OVERWORK [None]
  - PALPITATIONS [None]
  - PLEURAL EFFUSION [None]
  - PNEUMONIA [None]
  - PULMONARY CONGESTION [None]
  - PYREXIA [None]
  - SPUTUM DISCOLOURED [None]
  - WEIGHT DECREASED [None]
